FAERS Safety Report 17157221 (Version 1)
Quarter: 2019Q4

REPORT INFORMATION
  Report Type: Spontaneous
  Country: US (occurrence: US)
  Receive Date: 20191216
  Receipt Date: 20191216
  Transmission Date: 20200122
  Serious: No
  Sender: FDA-Public Use
  Company Number: US-AUROBINDO-AUR-APL-2019-028347

PATIENT
  Sex: Female

DRUGS (1)
  1. MIRTAZAPINE TABLETS 15 MG [Suspect]
     Active Substance: MIRTAZAPINE
     Indication: DECREASED APPETITE
     Dosage: TAKEN 2 OR 3 DOSES
     Route: 065
     Dates: start: 2016, end: 201902

REACTIONS (4)
  - Drug ineffective for unapproved indication [Unknown]
  - Decreased appetite [Unknown]
  - Sluggishness [Recovering/Resolving]
  - Product substitution issue [Unknown]

NARRATIVE: CASE EVENT DATE: 201902
